FAERS Safety Report 4282687-X (Version None)
Quarter: 2004Q1

REPORT INFORMATION
  Report Type: 
  Country: None (occurrence: None)
  Receive Date: 20040130
  Receipt Date: 20030221
  Transmission Date: 20041129
  Serious: No
  Sender: FDA-Public Use
  Company Number: US-BRISTOL-MYERS SQUIBB COMPANY-12192597

PATIENT
  Age: 57 Year
  Sex: Female

DRUGS (8)
  1. SERZONE [Suspect]
     Indication: BIPOLAR DISORDER
     Dosage: ONCE AT NIGHT
     Route: 048
     Dates: start: 20000808, end: 20030123
  2. VALPROIC ACID [Suspect]
     Dates: end: 20021010
  3. ZOCOR [Concomitant]
     Dates: end: 20030115
  4. LOPRESSOR [Concomitant]
  5. LISINOPRIL [Concomitant]
  6. VALTREX [Concomitant]
  7. SYNTHROID [Concomitant]
  8. TOPAMAX [Concomitant]

REACTIONS (1)
  - LIVER FUNCTION TEST ABNORMAL [None]
